FAERS Safety Report 4816254-3 (Version None)
Quarter: 2005Q4

REPORT INFORMATION
  Report Type: 
  Country: None (occurrence: None)
  Receive Date: 20051028
  Receipt Date: 20050930
  Transmission Date: 20060501
  Serious: Yes (Hospitalization)
  Sender: FDA-Public Use
  Company Number: 2005RR-00889

PATIENT
  Age: 55 Year
  Sex: Female

DRUGS (2)
  1. FLUOXETINE [Suspect]
     Dosage: 20 MG, QD, ORAL
     Route: 048
     Dates: start: 20050625, end: 20050625
  2. CARBAMAZEPINE [Concomitant]

REACTIONS (5)
  - ANXIETY [None]
  - CHILLS [None]
  - DELUSION [None]
  - TREMOR [None]
  - VOMITING [None]
